FAERS Safety Report 9018290 (Version 1)
Quarter: 2013Q1

REPORT INFORMATION
  Report Type: Spontaneous
  Country: BR (occurrence: BR)
  Receive Date: 20130117
  Receipt Date: 20130117
  Transmission Date: 20140127
  Serious: Yes (Hospitalization, Other)
  Sender: FDA-Public Use
  Company Number: BR-ASTRAZENECA-2013SE02520

PATIENT
  Age: 66 Year
  Sex: Male
  Weight: 67 kg

DRUGS (12)
  1. NEXIUM [Suspect]
     Indication: ULCER
     Route: 048
     Dates: start: 2010
  2. NEXIUM [Suspect]
     Indication: GASTRITIS
     Route: 048
     Dates: start: 2010
  3. SEROQUEL XRO [Suspect]
     Indication: BIPOLAR DISORDER
     Route: 048
     Dates: start: 2010
  4. SELOZOK [Suspect]
     Indication: HYPERTENSION
     Route: 048
     Dates: start: 2010
  5. BRILINTA [Suspect]
     Route: 048
     Dates: start: 201111
  6. LIPITOR [Concomitant]
     Route: 048
     Dates: start: 2002
  7. APRAZ [Concomitant]
     Route: 048
     Dates: start: 2002
  8. ASAS [Concomitant]
     Route: 048
     Dates: start: 2002
  9. XALATAN [Concomitant]
     Indication: GLAUCOMA
     Dosage: ROUTE-OCULAR
     Dates: start: 2008
  10. LOSARTAN [Concomitant]
     Route: 048
     Dates: start: 2009
  11. GLIFAGE [Concomitant]
     Dosage: BID
     Route: 048
     Dates: start: 2009
  12. JANUVIA [Concomitant]
     Dosage: BID
     Route: 048
     Dates: start: 2009

REACTIONS (5)
  - Bipolar disorder [Recovering/Resolving]
  - Coronary artery occlusion [Recovered/Resolved]
  - Bronchopneumonia [Recovered/Resolved]
  - Connective tissue disorder [Recovering/Resolving]
  - Off label use [Not Recovered/Not Resolved]
